FAERS Safety Report 12238931 (Version 1)
Quarter: 2016Q2

REPORT INFORMATION
  Report Type: Report from Study
  Country: CO (occurrence: CO)
  Receive Date: 20160405
  Receipt Date: 20160405
  Transmission Date: 20160815
  Serious: Yes (Hospitalization, Other)
  Sender: FDA-Public Use
  Company Number: CO-JNJFOC-20160400630

PATIENT
  Age: 68 Year
  Sex: Male
  Weight: 90 kg

DRUGS (3)
  1. STELARA [Suspect]
     Active Substance: USTEKINUMAB
     Indication: PSORIATIC ARTHROPATHY
     Route: 058
     Dates: start: 20160109
  2. STELARA [Suspect]
     Active Substance: USTEKINUMAB
     Indication: PSORIATIC ARTHROPATHY
     Route: 058
     Dates: start: 20150728, end: 201512
  3. STELARA [Suspect]
     Active Substance: USTEKINUMAB
     Indication: PSORIATIC ARTHROPATHY
     Route: 058
     Dates: start: 20140212, end: 201502

REACTIONS (7)
  - Knee arthroplasty [Unknown]
  - Incorrect dose administered [Unknown]
  - Postoperative abscess [Unknown]
  - Inappropriate schedule of drug administration [Unknown]
  - Hip fracture [Unknown]
  - Post procedural complication [Unknown]
  - Off label use [Unknown]

NARRATIVE: CASE EVENT DATE: 20140212
